FAERS Safety Report 8514747-9 (Version None)
Quarter: 2012Q3

REPORT INFORMATION
  Report Type: 
  Country: None (occurrence: None)
  Receive Date: 20120717
  Receipt Date: 20120711
  Transmission Date: 20120928
  Serious: Yes (Hospitalization)
  Sender: FDA-Public Use
  Company Number: US-BAYER-2012-009734

PATIENT
  Age: 31 Year
  Sex: Female
  Weight: 77.098 kg

DRUGS (8)
  1. PREDNISONE [Concomitant]
     Dosage: 50 MG, QD
     Route: 048
     Dates: start: 20091105
  2. FIORICET [Concomitant]
     Indication: TENSION HEADACHE
     Dosage: UNK
     Dates: start: 20090717
  3. ALBUTEROL [Concomitant]
     Dosage: 1-2 INHALATIONS EVERY 4 TO 6 HOURS AS NEEDED
     Dates: start: 20091105
  4. CECLOR [Concomitant]
     Dosage: 500 MG, TID
  5. YAZ [Suspect]
     Dosage: UNK
     Route: 048
     Dates: start: 20080701, end: 20091115
  6. ROBITUSSIN A C [CODEINE PHOSPHATE,GUAIFENESIN,PHENIRAMINE MALEATE] [Concomitant]
     Dosage: 10 ML EVERY 4 HOURS AS NEEDED
     Route: 048
     Dates: start: 20091105
  7. MOTRIN [Concomitant]
     Indication: HEADACHE
     Dosage: 2 PILLS WHEN NEEDED
  8. EXCEDRIN (MIGRAINE) [Concomitant]
     Dosage: PRN
     Dates: start: 20091115

REACTIONS (5)
  - DYSPNOEA [None]
  - INJURY [None]
  - EMOTIONAL DISTRESS [None]
  - PULMONARY EMBOLISM [None]
  - COUGH [None]
